FAERS Safety Report 6785203-3 (Version None)
Quarter: 2010Q2

REPORT INFORMATION
  Report Type: 
  Country: None (occurrence: None)
  Receive Date: 20100622
  Receipt Date: 20100622
  Transmission Date: 20101027
  Serious: Yes (Death)
  Sender: FDA-Public Use
  Company Number: None

PATIENT
  Age: 15 Month
  Sex: Male
  Weight: 7.6 kg

DRUGS (4)
  1. VIRAMUNE [Suspect]
     Indication: HIV INFECTION
     Dosage: 80 MG BID ORAL
     Route: 048
     Dates: start: 20090824, end: 20100503
  2. EPIVIR [Suspect]
     Indication: HIV INFECTION
     Dosage: 30 MG BID 0RAL
     Route: 048
     Dates: start: 20090824, end: 20100503
  3. RETROVIR [Suspect]
     Indication: HIV INFECTION
     Dosage: 70 MG ORAL BID
     Route: 048
     Dates: start: 20090824, end: 20100503
  4. COTRIM [Concomitant]

REACTIONS (1)
  - DEATH [None]
